FAERS Safety Report 16476718 (Version 1)
Quarter: 2019Q2

REPORT INFORMATION
  Report Type: Spontaneous
  Country: CA (occurrence: CA)
  Receive Date: 20190626
  Receipt Date: 20190626
  Transmission Date: 20190711
  Serious: Yes (Other)
  Sender: FDA-Public Use
  Company Number: CA-ROCHE-2343605

PATIENT
  Sex: Female

DRUGS (1)
  1. RITUXAN [Suspect]
     Active Substance: RITUXIMAB
     Indication: PRODUCT USED FOR UNKNOWN INDICATION
     Dosage: LAST RITUXIMAB WAS JAN OR FEB/2019
     Route: 042

REACTIONS (4)
  - Multiple sclerosis [Unknown]
  - Crohn^s disease [Unknown]
  - Therapeutic response shortened [Unknown]
  - Gait disturbance [Recovering/Resolving]
